FAERS Safety Report 12767788 (Version 1)
Quarter: 2016Q3

REPORT INFORMATION
  Report Type: Spontaneous
  Country: US (occurrence: US)
  Receive Date: 20160921
  Receipt Date: 20160921
  Transmission Date: 20161109
  Serious: No
  Sender: FDA-Public Use
  Company Number: US-ACTELION-A-NJ2016-142114

PATIENT
  Age: 87 Year
  Sex: Female

DRUGS (1)
  1. VALCHLOR [Suspect]
     Active Substance: MECHLORETHAMINE
     Indication: MYCOSIS FUNGOIDES
     Dosage: UNK, THIN LAYER QD TO AFFECTED AREA
     Route: 061
     Dates: start: 201608

REACTIONS (4)
  - Application site dryness [Unknown]
  - Application site pruritus [Unknown]
  - Disease progression [Unknown]
  - Application site discolouration [Unknown]
